FAERS Safety Report 6934041-7 (Version None)
Quarter: 2010Q3

REPORT INFORMATION
  Report Type: 
  Country: None (occurrence: None)
  Receive Date: 20100820
  Receipt Date: 20100811
  Transmission Date: 20110219
  Serious: Yes (Other)
  Sender: FDA-Public Use
  Company Number: JP-PFIZER INC-2010100856

PATIENT
  Age: 56 Year
  Sex: Male

DRUGS (1)
  1. LIPITOR [Suspect]
     Dosage: 10 MG, DAILY
     Route: 048
     Dates: start: 20090106

REACTIONS (2)
  - BLOOD BILIRUBIN INCREASED [None]
  - MASS [None]
